FAERS Safety Report 9462167 (Version 1)
Quarter: 2013Q3

REPORT INFORMATION
  Report Type: Spontaneous
  Country: US (occurrence: None)
  Receive Date: 20130815
  Receipt Date: 20130815
  Transmission Date: 20140515
  Serious: Yes (Hospitalization)
  Sender: FDA-Public Use
  Company Number: None

PATIENT
  Age: 63 Year
  Sex: Female
  Weight: 81.4 kg

DRUGS (6)
  1. SEPTRA [Suspect]
     Indication: URINARY TRACT INFECTION
     Dosage: UTI
     Route: 048
  2. HCTZ/LISINOPRIL [Suspect]
     Dosage: 12.5/10 DAILY PO
     Route: 048
  3. ZOSYN [Suspect]
     Route: 042
  4. CALCIUM CARBONATE [Suspect]
     Dosage: 12.5/10 DAILY PO CHRONIC
  5. SYNTHROID [Concomitant]
  6. PROTONIX [Concomitant]

REACTIONS (8)
  - Renal failure acute [None]
  - Nausea [None]
  - Vomiting [None]
  - Azotaemia [None]
  - Electrolyte imbalance [None]
  - Tubulointerstitial nephritis [None]
  - Hypercalcaemia [None]
  - Hyperkalaemia [None]
